FAERS Safety Report 6972683-3 (Version None)
Quarter: 2010Q3

REPORT INFORMATION
  Report Type: 
  Country: None (occurrence: None)
  Receive Date: 20100909
  Receipt Date: 20100308
  Transmission Date: 20110219
  Serious: No
  Sender: FDA-Public Use
  Company Number: US-KINGPHARMUSA00001-K201000301

PATIENT
  Sex: Female
  Weight: 61.224 kg

DRUGS (17)
  1. CYTOMEL [Suspect]
     Indication: HYPOTHYROIDISM
     Dosage: 5 MCG, QD
     Route: 048
     Dates: end: 20100101
  2. PREMARIN [Concomitant]
     Dosage: 2.5 MG, QD
  3. VERAPAMIL HCL [Concomitant]
     Dosage: 120 MG, QD
  4. ACIPHEX [Concomitant]
     Dosage: 20 MG, BID
  5. NEURONTIN [Concomitant]
     Dosage: 900 MG, QD
  6. MELOXICAM [Concomitant]
     Dosage: 15 MG, QD
  7. HYDROCODONE [Concomitant]
     Dosage: 3-4 TABS PRN
  8. XANAX [Concomitant]
     Dosage: 1-1.5 MG, QHS
  9. VAGIFEM [Concomitant]
     Dosage: 25 MCG, BIW
  10. CALCET [Concomitant]
     Indication: MUSCLE SPASMS
     Dosage: 2 DF, BID
  11. CENTRUM SILVER [Concomitant]
     Dosage: UNK
  12. VITAMIN E [Concomitant]
     Dosage: 1000 IU, UNK
  13. ASCORBIC ACID [Concomitant]
     Dosage: 1000 MG, UNK
  14. VITAMIN D [Concomitant]
     Dosage: 1000 IU, UNK
  15. CRANBERRY [Concomitant]
     Dosage: 475 MG, UNK
  16. TUMS [Concomitant]
     Dosage: 1000 UNK, UNK
  17. FISH OIL [Concomitant]
     Dosage: 1200 MG, UNK

REACTIONS (1)
  - DRUG INEFFECTIVE [None]
